FAERS Safety Report 9669629 (Version 1)
Quarter: 2013Q4

REPORT INFORMATION
  Report Type: Spontaneous
  Country: US (occurrence: None)
  Receive Date: 20131104
  Receipt Date: 20131104
  Transmission Date: 20140711
  Serious: Yes (Other)
  Sender: FDA-Public Use
  Company Number: None

PATIENT
  Age: 73 Year
  Sex: Female
  Weight: 56.25 kg

DRUGS (8)
  1. GABAPENTIN [Suspect]
     Indication: NEURALGIA
     Route: 048
     Dates: start: 20130914, end: 20131017
  2. GABAPENTIN [Suspect]
     Indication: GROIN PAIN
     Route: 048
     Dates: start: 20130914, end: 20131017
  3. GABAPENTIN [Suspect]
     Indication: PAIN IN EXTREMITY
     Route: 048
     Dates: start: 20130914, end: 20131017
  4. NEXIUM [Concomitant]
  5. SIMVISTATIN [Concomitant]
  6. AMBIEN [Concomitant]
  7. VITAMIN D [Concomitant]
  8. NIFEDIPINE ER (XI) [Concomitant]

REACTIONS (1)
  - Vision blurred [None]
